FAERS Safety Report 4722912-1 (Version None)
Quarter: 2005Q3

REPORT INFORMATION
  Report Type: 
  Country: None (occurrence: None)
  Receive Date: 20050722
  Receipt Date: 20050713
  Transmission Date: 20060218
  Serious: Yes (Death)
  Sender: FDA-Public Use
  Company Number: US-ABBOTT-05P-163-0306206-00

PATIENT
  Sex: Male

DRUGS (3)
  1. SYNTHROID [Suspect]
     Indication: DRUG USE FOR UNKNOWN INDICATION
     Route: 048
     Dates: start: 20040923, end: 20050513
  2. SYNTHROID [Suspect]
     Route: 048
     Dates: start: 20031111, end: 20040128
  3. SYNTHROID [Suspect]
     Route: 048
     Dates: start: 20040129, end: 20040922

REACTIONS (2)
  - LUNG SQUAMOUS CELL CARCINOMA STAGE UNSPECIFIED [None]
  - MYOCARDIAL ISCHAEMIA [None]
